FAERS Safety Report 20032506 (Version 1)
Quarter: 2021Q4

REPORT INFORMATION
  Report Type: Spontaneous
  Country: US (occurrence: US)
  Receive Date: 20211103
  Receipt Date: 20211103
  Transmission Date: 20220303
  Serious: No
  Sender: FDA-Public Use
  Company Number: US-009507513-2110USA003585

PATIENT

DRUGS (1)
  1. EMEND [Suspect]
     Active Substance: APREPITANT
     Indication: Impaired gastric emptying
     Dosage: 40 MILLIGRAM
     Route: 048

REACTIONS (2)
  - Drug ineffective for unapproved indication [Unknown]
  - No adverse event [Unknown]
